FAERS Safety Report 15191581 (Version 2)
Quarter: 2018Q3

REPORT INFORMATION
  Report Type: Spontaneous
  Country: US (occurrence: US)
  Receive Date: 20180724
  Receipt Date: 20180726
  Transmission Date: 20181010
  Serious: Yes (Hospitalization)
  Sender: FDA-Public Use
  Company Number: US-MIST-TIR-2018-0591

PATIENT
  Age: 47 Year
  Sex: Female

DRUGS (2)
  1. TIROSINT [Suspect]
     Active Substance: LEVOTHYROXINE SODIUM
     Indication: HYPOTHYROIDISM
     Dosage: ONE 75MCG CAPSULE ON ALTERNATING DAYS
     Route: 048
     Dates: start: 20180217, end: 2018
  2. TIROSINT [Suspect]
     Active Substance: LEVOTHYROXINE SODIUM
     Indication: HYPOTHYROIDISM
     Dosage: ONE 50MCG CAPSULE ON ALTERNATING DAYS
     Route: 048
     Dates: start: 20180217, end: 2018

REACTIONS (10)
  - Chest pain [Unknown]
  - Urticaria [Recovered/Resolved]
  - Pain [Unknown]
  - Chest discomfort [Unknown]
  - Hypersensitivity [Recovered/Resolved]
  - Emotional distress [Unknown]
  - Heart rate increased [Recovered/Resolved]
  - Heart rate irregular [Unknown]
  - Swelling face [Recovered/Resolved]
  - Injury [Unknown]

NARRATIVE: CASE EVENT DATE: 2018
